FAERS Safety Report 6921016-7 (Version None)
Quarter: 2010Q3

REPORT INFORMATION
  Report Type: 
  Country: None (occurrence: None)
  Receive Date: 20100812
  Receipt Date: 20100804
  Transmission Date: 20110219
  Serious: Yes (Other)
  Sender: FDA-Public Use
  Company Number: JP-PFIZER INC-2010080527

PATIENT
  Age: 52 Year
  Sex: Male

DRUGS (2)
  1. DOXAZOSIN MESYLATE [Suspect]
     Dosage: 4 MG, 2X/DAY
     Route: 048
     Dates: start: 20091001
  2. ONE-ALPHA [Concomitant]
     Dosage: UNK
     Route: 048

REACTIONS (1)
  - BLOOD CALCIUM DECREASED [None]
